FAERS Safety Report 25604785 (Version 1)
Quarter: 2025Q3

REPORT INFORMATION
  Report Type: Spontaneous
  Country: JP (occurrence: None)
  Receive Date: 20250725
  Receipt Date: 20250725
  Transmission Date: 20251020
  Serious: Yes (Death)
  Sender: Alvotech
  Company Number: JP-ALVOTECHPMS-2025-ALVOTECHPMS-004651

PATIENT
  Age: 52 Year
  Sex: Male
  Weight: 78 kg

DRUGS (1)
  1. USTEKINUMAB [Suspect]
     Active Substance: USTEKINUMAB
     Indication: Psoriasis
     Route: 058
     Dates: start: 20250612, end: 20250612

REACTIONS (1)
  - Death [Fatal]

NARRATIVE: CASE EVENT DATE: 20250710
